FAERS Safety Report 8270405-X (Version None)
Quarter: 2012Q1

REPORT INFORMATION
  Report Type: 
  Country: None (occurrence: None)
  Receive Date: 20120327
  Receipt Date: 20100302
  Transmission Date: 20120608
  Serious: Yes (Other)
  Sender: FDA-Public Use
  Company Number: PHHY2010US04446

PATIENT
  Sex: Male

DRUGS (1)
  1. GLEEVEC [Suspect]
     Indication: GASTROINTESTINAL STROMAL TUMOUR
     Dosage: 400 MG, UNK, ORAL
     Route: 048

REACTIONS (6)
  - HIGH FREQUENCY ABLATION [None]
  - NEUROPATHY PERIPHERAL [None]
  - BALANCE DISORDER [None]
  - METASTASES TO LIVER [None]
  - NEOPLASM MALIGNANT [None]
  - GASTROINTESTINAL STROMAL TUMOUR [None]
